FAERS Safety Report 6992476-0 (Version None)
Quarter: 2010Q3

REPORT INFORMATION
  Report Type: 
  Country: None (occurrence: None)
  Receive Date: 20100917
  Receipt Date: 20100914
  Transmission Date: 20110219
  Serious: Yes (Death, Other)
  Sender: FDA-Public Use
  Company Number: PHHY2010GB60605

PATIENT
  Age: 46 Year
  Sex: Male

DRUGS (2)
  1. CYCLOSPORINE [Suspect]
     Indication: RENAL TRANSPLANT
  2. PREDNISOLONE [Suspect]
     Indication: RENAL TRANSPLANT

REACTIONS (7)
  - BILIARY FIBROSIS [None]
  - HEPATIC LESION [None]
  - HEPATIC NEOPLASM MALIGNANT RECURRENT [None]
  - HEPATITIS C [None]
  - INFLAMMATION [None]
  - LIVER TRANSPLANT [None]
  - TUMOUR INVASION [None]
